FAERS Safety Report 21418252 (Version 2)
Quarter: 2023Q4

REPORT INFORMATION
  Report Type: Spontaneous
  Country: US (occurrence: US)
  Receive Date: 20221006
  Receipt Date: 20231128
  Transmission Date: 20240109
  Serious: Yes (Death, Hospitalization)
  Sender: FDA-Public Use
  Company Number: US-AMGEN-USASP2022166489

PATIENT
  Age: 53 Year
  Sex: Male

DRUGS (3)
  1. XGEVA [Suspect]
     Active Substance: DENOSUMAB
     Indication: Hypercalcaemia of malignancy
     Dosage: 120 MILLIGRAM, 1 DOSE
     Route: 058
  2. CALCITONIN [Concomitant]
     Active Substance: CALCITONIN
     Dosage: 4 UNIT/KILOGRAM FOR 48 HOURS
  3. VITAMIN D [Concomitant]
     Active Substance: VITAMIN D NOS

REACTIONS (3)
  - Neoplasm [Fatal]
  - Hypocalcaemia [Recovered/Resolved]
  - Hypercalcaemia [Unknown]
